FAERS Safety Report 8821245 (Version 1)
Quarter: 2012Q4

REPORT INFORMATION
  Report Type: 
  Country: US (occurrence: US)
  Receive Date: 20121002
  Receipt Date: 20121002
  Transmission Date: 20130627
  Serious: Yes (Other)
  Sender: FDA-Public Use
  Company Number: US-BAYER-2012-100278

PATIENT
  Sex: Female

DRUGS (1)
  1. MIRENA [Suspect]
     Dosage: 20 ?g/d, UNK
     Route: 015
     Dates: start: 20120814

REACTIONS (4)
  - Uterine haemorrhage [None]
  - Dyspareunia [None]
  - Abdominal pain [None]
  - Uterine leiomyoma [None]
